FAERS Safety Report 9704022 (Version 1)
Quarter: 2013Q4

REPORT INFORMATION
  Report Type: Spontaneous
  Country: US (occurrence: US)
  Receive Date: 20131122
  Receipt Date: 20131122
  Transmission Date: 20140711
  Serious: No
  Sender: FDA-Public Use
  Company Number: US-BRISTOL-MYERS SQUIBB COMPANY-18822080

PATIENT
  Sex: Female

DRUGS (2)
  1. GLUCOPHAGE XR TABS 500 MG [Suspect]
     Dosage: 1 DF: 4 TABS
  2. VICTOZA [Suspect]

REACTIONS (1)
  - Medication residue present [Unknown]
